FAERS Safety Report 6831437-9 (Version None)
Quarter: 2010Q3

REPORT INFORMATION
  Report Type: 
  Country: None (occurrence: None)
  Receive Date: 20100712
  Receipt Date: 20070411
  Transmission Date: 20110219
  Serious: Yes (Other)
  Sender: FDA-Public Use
  Company Number: US-PFIZER INC-2007014079

PATIENT
  Sex: Female
  Weight: 91.6 kg

DRUGS (10)
  1. CHANTIX [Suspect]
     Indication: EX-TOBACCO USER
     Dosage: DAILY
     Dates: start: 20070129
  2. DILTIAZEM [Concomitant]
  3. ZYRTEC [Concomitant]
  4. PROTONIX [Concomitant]
  5. PRAVACHOL [Concomitant]
  6. ISOSORBIDE [Concomitant]
  7. ACETYLSALICYLIC ACID [Concomitant]
  8. GLIPIZIDE [Concomitant]
  9. FISH OIL [Concomitant]
  10. AVAPRO [Concomitant]

REACTIONS (1)
  - BLOOD PRESSURE INCREASED [None]
